FAERS Safety Report 7767875-X (Version None)
Quarter: 2011Q3

REPORT INFORMATION
  Report Type: 
  Country: None (occurrence: None)
  Receive Date: 20110922
  Receipt Date: 20110221
  Transmission Date: 20111222
  Serious: No
  Sender: FDA-Public Use
  Company Number: US-ASTRAZENECA-2011SE09870

PATIENT
  Age: 44 Year
  Sex: Female
  Weight: 70.3 kg

DRUGS (6)
  1. CYMBALTA [Concomitant]
  2. SEROQUEL XR [Suspect]
     Indication: FIBROMYALGIA
     Route: 048
  3. VALIUM [Concomitant]
  4. SEROQUEL XR [Suspect]
     Indication: BIPOLAR DISORDER
     Route: 048
  5. SEROQUEL XR [Suspect]
     Indication: DEPRESSION
     Route: 048
  6. KLONOPIN [Concomitant]

REACTIONS (11)
  - ARTHRALGIA [None]
  - DECREASED APPETITE [None]
  - TREMOR [None]
  - MUSCLE TWITCHING [None]
  - DRUG DOSE OMISSION [None]
  - ASTHENIA [None]
  - HYPERSOMNIA [None]
  - MYDRIASIS [None]
  - MYALGIA [None]
  - POLLAKIURIA [None]
  - WEIGHT DECREASED [None]
